FAERS Safety Report 6078886-7 (Version None)
Quarter: 2009Q1

REPORT INFORMATION
  Report Type: 
  Country: None (occurrence: None)
  Receive Date: 20090216
  Receipt Date: 20090116
  Transmission Date: 20090719
  Serious: No
  Sender: FDA-Public Use
  Company Number: US-BAYER-200840766NA

PATIENT
  Age: 50 Year
  Sex: Female
  Weight: 73 kg

DRUGS (3)
  1. YAZ [Suspect]
     Indication: CONTRACEPTION
     Route: 048
     Dates: start: 20081001, end: 20081212
  2. LEVOXYL [Concomitant]
  3. CYTOMEL [Concomitant]

REACTIONS (1)
  - PAIN IN EXTREMITY [None]
